FAERS Safety Report 18631677 (Version 2)
Quarter: 2020Q4

REPORT INFORMATION
  Report Type: Spontaneous
  Country: US (occurrence: US)
  Receive Date: 20201217
  Receipt Date: 20201229
  Transmission Date: 20210114
  Serious: Yes (Other)
  Sender: FDA-Public Use
  Company Number: US-UCBSA-2020051188

PATIENT
  Age: 55 Year
  Sex: Female
  Weight: 68.03 kg

DRUGS (2)
  1. NEUPRO [Suspect]
     Active Substance: ROTIGOTINE
     Indication: PARKINSON^S DISEASE
     Dosage: 4 MILLIGRAM, ONCE DAILY (QD)
     Route: 062
     Dates: start: 20201101
  2. NEUPRO [Suspect]
     Active Substance: ROTIGOTINE
     Dosage: 4 MILLIGRAM, ONCE DAILY (QD)
     Route: 062
     Dates: end: 20201204

REACTIONS (7)
  - Craniocerebral injury [Recovering/Resolving]
  - Fall [Recovering/Resolving]
  - Product adhesion issue [Unknown]
  - Incorrect dose administered [Unknown]
  - Concussion [Unknown]
  - Parkinson^s disease [Recovering/Resolving]
  - Facial bones fracture [Recovering/Resolving]

NARRATIVE: CASE EVENT DATE: 20201127
